FAERS Safety Report 24348577 (Version 8)
Quarter: 2025Q3

REPORT INFORMATION
  Report Type: Report from Study
  Country: CN (occurrence: CN)
  Receive Date: 20240923
  Receipt Date: 20250724
  Transmission Date: 20251021
  Serious: Yes (Hospitalization)
  Sender: SANOFI AVENTIS
  Company Number: CN-SA-2024SA269558

PATIENT
  Age: 64 Year
  Sex: Male
  Weight: 73.5 kg

DRUGS (38)
  1. ISATUXIMAB [Suspect]
     Active Substance: ISATUXIMAB
     Indication: Plasma cell myeloma refractory
     Route: 042
     Dates: start: 20230302, end: 20230302
  2. ISATUXIMAB [Suspect]
     Active Substance: ISATUXIMAB
     Route: 042
     Dates: start: 20240905, end: 20240905
  3. ISATUXIMAB [Suspect]
     Active Substance: ISATUXIMAB
     Route: 042
     Dates: start: 20250704, end: 20250704
  4. POMALIDOMIDE [Suspect]
     Active Substance: POMALIDOMIDE
     Indication: Plasma cell myeloma refractory
     Route: 048
     Dates: start: 20230302, end: 20230313
  5. DEXAMETHASONE [Suspect]
     Active Substance: DEXAMETHASONE
     Indication: Plasma cell myeloma refractory
     Route: 042
     Dates: start: 20230302
  6. DEXAMETHASONE [Suspect]
     Active Substance: DEXAMETHASONE
     Route: 042
     Dates: start: 20230309
  7. DEXAMETHASONE [Suspect]
     Active Substance: DEXAMETHASONE
     Route: 042
     Dates: start: 20230323
  8. DEXAMETHASONE [Suspect]
     Active Substance: DEXAMETHASONE
     Route: 048
     Dates: start: 20240829
  9. PANTOPRAZOLE SODIUM [Concomitant]
     Active Substance: PANTOPRAZOLE SODIUM
     Indication: Prophylaxis
     Route: 048
     Dates: start: 20240611, end: 20240611
  10. PANTOPRAZOLE SODIUM [Concomitant]
     Active Substance: PANTOPRAZOLE SODIUM
     Route: 048
     Dates: start: 20240625, end: 20240625
  11. PANTOPRAZOLE SODIUM [Concomitant]
     Active Substance: PANTOPRAZOLE SODIUM
     Route: 048
     Dates: start: 20240711, end: 20240711
  12. PANTOPRAZOLE SODIUM [Concomitant]
     Active Substance: PANTOPRAZOLE SODIUM
     Route: 048
     Dates: start: 20240725, end: 20240725
  13. PANTOPRAZOLE SODIUM [Concomitant]
     Active Substance: PANTOPRAZOLE SODIUM
     Route: 048
     Dates: start: 20240808, end: 20240808
  14. PANTOPRAZOLE SODIUM [Concomitant]
     Active Substance: PANTOPRAZOLE SODIUM
     Route: 048
     Dates: start: 20240822, end: 20240822
  15. PANTOPRAZOLE SODIUM [Concomitant]
     Active Substance: PANTOPRAZOLE SODIUM
     Route: 048
     Dates: start: 20240905, end: 20240905
  16. PANTOPRAZOLE SODIUM [Concomitant]
     Active Substance: PANTOPRAZOLE SODIUM
     Route: 048
     Dates: start: 20230330
  17. PANTOPRAZOLE SODIUM [Concomitant]
     Active Substance: PANTOPRAZOLE SODIUM
     Dosage: 40 MG, QD
     Route: 048
     Dates: start: 20231206, end: 20231206
  18. PANTOPRAZOLE SODIUM [Concomitant]
     Active Substance: PANTOPRAZOLE SODIUM
     Route: 048
     Dates: start: 20240919, end: 20240919
  19. INSULIN HUMAN [Concomitant]
     Active Substance: INSULIN HUMAN
     Route: 058
     Dates: start: 20230228
  20. METOPROLOL SUCCINATE [Concomitant]
     Active Substance: METOPROLOL SUCCINATE
     Route: 048
     Dates: start: 20240311
  21. AVATROMBOPAG [Concomitant]
     Active Substance: AVATROMBOPAG
     Route: 048
     Dates: start: 20240320
  22. METFORMIN HYDROCHLORIDE\SITAGLIPTIN PHOSPHATE [Concomitant]
     Active Substance: METFORMIN HYDROCHLORIDE\SITAGLIPTIN PHOSPHATE
     Route: 048
     Dates: start: 20240411
  23. CALCIUM CARBONATE\CHOLECALCIFEROL [Concomitant]
     Active Substance: CALCIUM CARBONATE\CHOLECALCIFEROL
     Route: 048
     Dates: start: 20240514, end: 20241002
  24. VALGANCICLOVIR HYDROCHLORIDE [Concomitant]
     Active Substance: VALGANCICLOVIR HYDROCHLORIDE
     Route: 048
     Dates: start: 20240525, end: 20240912
  25. CLOSTRIDIUM BUTYRICUM [Concomitant]
     Route: 048
     Dates: start: 20240527, end: 20240903
  26. MONTMORILLONITE [Concomitant]
     Active Substance: MONTMORILLONITE
     Route: 048
     Dates: start: 20240611
  27. LOPERAMIDE HYDROCHLORIDE [Concomitant]
     Active Substance: LOPERAMIDE HYDROCHLORIDE
     Route: 048
     Dates: start: 20240611
  28. LEUCOGEN [Concomitant]
     Active Substance: LEUCOGEN
     Route: 048
     Dates: start: 20240808, end: 20240922
  29. POTASSIUM CHLORIDE [Concomitant]
     Active Substance: POTASSIUM CHLORIDE
     Route: 048
     Dates: start: 20240909
  30. COMPOUND GLYCYRRHIZA [FOENICULUM VULGARE;GLYCYRRHIZA SPP.;SENNA SPP. L [Concomitant]
     Route: 048
     Dates: start: 20240824, end: 20240915
  31. HUMAN IMMUNOGLOBULIN G [Concomitant]
     Active Substance: HUMAN IMMUNOGLOBULIN G
     Indication: Prophylaxis
     Route: 041
     Dates: start: 20240904, end: 20240906
  32. HUMAN RED BLOOD CELL [Concomitant]
     Active Substance: HUMAN RED BLOOD CELL
     Route: 041
     Dates: start: 20240905, end: 20240905
  33. POTASSIUM CHLORIDE [Concomitant]
     Active Substance: POTASSIUM CHLORIDE
     Route: 041
     Dates: start: 20240905, end: 20240905
  34. MAGNESIUM SULFATE [Concomitant]
     Active Substance: MAGNESIUM SULFATE
     Dosage: 2.5 G, QD
     Route: 041
     Dates: start: 20240905, end: 20240905
  35. TELPEGFILGRASTIM [Concomitant]
     Route: 058
     Dates: start: 20240905, end: 20240905
  36. ACETAMINOPHEN [Concomitant]
     Active Substance: ACETAMINOPHEN
     Route: 048
     Dates: start: 20240907, end: 20240907
  37. PLATELETS [Concomitant]
     Active Substance: HUMAN PLATELET, ALLOGENIC
     Route: 041
     Dates: start: 20240829, end: 20240829
  38. LIVE COMBINED BIFIDOBACTERIUM AND LACTOBACILLUS [Concomitant]
     Route: 048
     Dates: start: 20240904, end: 20240909

REACTIONS (2)
  - Infection [Not Recovered/Not Resolved]
  - Influenza like illness [Recovered/Resolved]

NARRATIVE: CASE EVENT DATE: 20240907
